FAERS Safety Report 6730937-X (Version None)
Quarter: 2010Q2

REPORT INFORMATION
  Report Type: 
  Country: None (occurrence: None)
  Receive Date: 20100518
  Receipt Date: 20100514
  Transmission Date: 20101027
  Serious: Yes (Death)
  Sender: FDA-Public Use
  Company Number: US-ROXANE LABORATORIES, INC.-2010-RO-00575RO

PATIENT
  Age: 22 Year
  Sex: Male

DRUGS (6)
  1. CODEINE SULFATE [Suspect]
     Indication: DRUG ABUSE
  2. MEPHEDRONE [Suspect]
     Indication: DRUG ABUSE
  3. MEPHEDRONE [Suspect]
     Route: 042
  4. MEPHEDRONE [Suspect]
     Route: 048
  5. HEROIN [Suspect]
     Indication: DRUG ABUSE
     Route: 042
  6. DOXYLAMINE SUCCINATE [Suspect]

REACTIONS (1)
  - DRUG TOXICITY [None]
